FAERS Safety Report 16537623 (Version 2)
Quarter: 2019Q3

REPORT INFORMATION
  Report Type: Spontaneous
  Country: CZ (occurrence: CZ)
  Receive Date: 20190708
  Receipt Date: 20190720
  Transmission Date: 20191004
  Serious: Yes (Other)
  Sender: FDA-Public Use
  Company Number: CZ-AUROBINDO-AUR-APL-2016-06522

PATIENT

DRUGS (6)
  1. OLANZAPINE 10MG [Suspect]
     Active Substance: OLANZAPINE
     Indication: SCHIZOPHRENIA
     Dosage: 10 MG, UNK
     Route: 065
  2. ZOTEPINE [Concomitant]
     Active Substance: ZOTEPINE
     Indication: MENTAL DISORDER
  3. LEVOMEPROMAZINE [Suspect]
     Active Substance: LEVOMEPROMAZINE
     Indication: SCHIZOPHRENIA
     Dosage: 25 MG, UNK
     Route: 065
  4. LEVOMEPROMAZINE [Suspect]
     Active Substance: LEVOMEPROMAZINE
     Indication: MENTAL DISORDER
  5. OLANZAPINE 10MG [Suspect]
     Active Substance: OLANZAPINE
     Indication: MENTAL DISORDER
  6. ZOTEPINE [Concomitant]
     Active Substance: ZOTEPINE
     Indication: SCHIZOPHRENIA
     Dosage: 100 MILLIGRAM
     Route: 065

REACTIONS (4)
  - Weight increased [Unknown]
  - Sedation [Unknown]
  - Deep vein thrombosis [Unknown]
  - Body mass index increased [Unknown]
